FAERS Safety Report 19147986 (Version 1)
Quarter: 2021Q2

REPORT INFORMATION
  Report Type: Spontaneous
  Country: CZ (occurrence: CZ)
  Receive Date: 20210417
  Receipt Date: 20210417
  Transmission Date: 20210717
  Serious: Yes (Hospitalization, Other)
  Sender: FDA-Public Use
  Company Number: CZ-AUROBINDO-AUR-APL-2019-087973

PATIENT
  Age: 58 Year
  Sex: Male

DRUGS (2)
  1. FENOFIBRATE. [Suspect]
     Active Substance: FENOFIBRATE
     Indication: HYPERCHOLESTEROLAEMIA
     Dosage: 200 MILLIGRAM, ONCE A DAY
     Route: 065
  2. SIMVASTATIN. [Suspect]
     Active Substance: SIMVASTATIN
     Indication: HYPERCHOLESTEROLAEMIA
     Dosage: 20 MILLIGRAM, DAILY
     Route: 065

REACTIONS (2)
  - Muscle enzyme increased [Unknown]
  - Polymyositis [Recovering/Resolving]
